FAERS Safety Report 5509547-8 (Version None)
Quarter: 2007Q4

REPORT INFORMATION
  Report Type: 
  Country: None (occurrence: None)
  Receive Date: 20071029
  Receipt Date: 20070828
  Transmission Date: 20080405
  Serious: No
  Sender: FDA-Public Use
  Company Number: 013051

PATIENT
  Age: 28 Year
  Sex: Male

DRUGS (5)
  1. PRIALT [Suspect]
     Indication: NEURALGIA
     Dosage: SEE IMAGE
     Route: 037
     Dates: start: 20070705, end: 20070723
  2. PRIALT [Suspect]
     Indication: NEURALGIA
     Dosage: SEE IMAGE
     Route: 037
     Dates: start: 20070723
  3. PRIALT [Suspect]
     Indication: NEURALGIA
     Dosage: SEE IMAGE
     Route: 037
     Dates: start: 20070820
  4. FENTANYL [Concomitant]
  5. OXYMORPHONE (OXYMORPHONE) [Concomitant]

REACTIONS (3)
  - CYST [None]
  - FLUSHING [None]
  - PAIN [None]
